FAERS Safety Report 25549943 (Version 1)
Quarter: 2025Q3

REPORT INFORMATION
  Report Type: Spontaneous
  Country: US (occurrence: US)
  Receive Date: 20250714
  Receipt Date: 20250714
  Transmission Date: 20251021
  Serious: No
  Sender: NOVO NORDISK
  Company Number: US-NOVOPROD-1456969

PATIENT
  Age: 42 Year
  Sex: Female
  Weight: 145 kg

DRUGS (1)
  1. SEMAGLUTIDE [Suspect]
     Active Substance: SEMAGLUTIDE
     Indication: Product used for unknown indication

REACTIONS (4)
  - Adverse drug reaction [Unknown]
  - General physical health deterioration [Unknown]
  - Drug ineffective [Unknown]
  - Counterfeit product administered [Unknown]
